FAERS Safety Report 24878089 (Version 1)
Quarter: 2025Q1

REPORT INFORMATION
  Report Type: Spontaneous
  Country: IT (occurrence: IT)
  Receive Date: 20250123
  Receipt Date: 20250123
  Transmission Date: 20250409
  Serious: Yes (Hospitalization)
  Sender: NOVARTIS
  Company Number: None

PATIENT
  Age: 63 Year
  Sex: Female

DRUGS (2)
  1. IMATINIB [Suspect]
     Active Substance: IMATINIB
     Indication: Philadelphia positive chronic myeloid leukaemia
     Dosage: 400 MG, Q24H (11.200 MG ~DOSE TOTALE PARI A 400 MG/DIE X 28 GG)
     Route: 048
     Dates: start: 20241001, end: 20241015
  2. ALLOPURINOL [Concomitant]
     Active Substance: ALLOPURINOL
     Indication: Hyperuricaemia
     Dosage: 300 MG, Q24H (300 MG / DIE)
     Route: 048
     Dates: start: 20241001, end: 20241015

REACTIONS (4)
  - Hyperpyrexia [Recovered/Resolved]
  - Hypotension [Recovered/Resolved]
  - Drug eruption [Recovered/Resolved]
  - Oxygen saturation decreased [Recovered/Resolved]

NARRATIVE: CASE EVENT DATE: 20241016
